FAERS Safety Report 22254562 (Version 1)
Quarter: 2023Q2

REPORT INFORMATION
  Report Type: Spontaneous
  Country: FR (occurrence: FR)
  Receive Date: 20230426
  Receipt Date: 20230426
  Transmission Date: 20230721
  Serious: Yes (Hospitalization, Other)
  Sender: FDA-Public Use
  Company Number: FR-SA-SAC20230425000441

PATIENT
  Age: 66 Year
  Sex: Male

DRUGS (1)
  1. DUPIXENT [Suspect]
     Active Substance: DUPILUMAB
     Indication: Asthma
     Dosage: UNK

REACTIONS (9)
  - Cardiac failure [Unknown]
  - Oedema peripheral [Unknown]
  - Acute respiratory failure [Unknown]
  - Dyspnoea [Unknown]
  - Myocardial infarction [Unknown]
  - Ejection fraction decreased [Unknown]
  - Hyperadrenocorticism [Unknown]
  - Dilated cardiomyopathy [Unknown]
  - Asthma [Unknown]
